FAERS Safety Report 14008845 (Version 2)
Quarter: 2017Q3

REPORT INFORMATION
  Report Type: Spontaneous
  Country: MX (occurrence: MX)
  Receive Date: 20170925
  Receipt Date: 20170927
  Transmission Date: 20171128
  Serious: Yes (Other)
  Sender: FDA-Public Use
  Company Number: MX-PFIZER INC-2017412810

PATIENT
  Age: 83 Year
  Sex: Female

DRUGS (2)
  1. NORVASC [Suspect]
     Active Substance: AMLODIPINE BESYLATE
     Dosage: 5 MG, DAILY
  2. ALDACTONE [Suspect]
     Active Substance: SPIRONOLACTONE
     Dosage: 25 MG, UNK
     Dates: start: 2014

REACTIONS (1)
  - Deafness [Not Recovered/Not Resolved]
